FAERS Safety Report 11382906 (Version 1)
Quarter: 2015Q3

REPORT INFORMATION
  Report Type: Spontaneous
  Country: US (occurrence: US)
  Receive Date: 20150814
  Receipt Date: 20150814
  Transmission Date: 20151125
  Serious: Yes (Hospitalization, Other)
  Sender: FDA-Public Use
  Company Number: US-PFIZER INC-2015267546

PATIENT

DRUGS (2)
  1. NEURONTIN [Suspect]
     Active Substance: GABAPENTIN
     Dosage: 1600 MG, DAILY
  2. NEURONTIN [Suspect]
     Active Substance: GABAPENTIN
     Dosage: 2400 MG, DAILY

REACTIONS (5)
  - Cardiac failure acute [Unknown]
  - Acute kidney injury [Unknown]
  - Cardiorenal syndrome [Unknown]
  - Renal ischaemia [Unknown]
  - Fluid overload [Unknown]
